FAERS Safety Report 13363272 (Version 2)
Quarter: 2017Q3

REPORT INFORMATION
  Report Type: Spontaneous
  Country: DE (occurrence: DE)
  Receive Date: 20170323
  Receipt Date: 20170707
  Transmission Date: 20171127
  Serious: Yes (Death)
  Sender: FDA-Public Use
  Company Number: DE-MERRIMACK PHARMACEUTICALS, INC.-MER-2017-000057

PATIENT
  Sex: Female
  Weight: 72 kg

DRUGS (4)
  1. ONIVYDE [Suspect]
     Active Substance: IRINOTECAN HYDROCHLORIDE
     Indication: PANCREATIC CARCINOMA
     Dosage: 150 MG, UNK
     Route: 042
     Dates: start: 20170206
  2. FOLINIC ACID [Suspect]
     Active Substance: LEUCOVORIN
     Indication: PANCREATIC CARCINOMA
     Dosage: 750 MG, UNK (FOR 30 MINUTES)
     Route: 042
  3. 5 FLUOROURACIL                     /00098801/ [Suspect]
     Active Substance: FLUOROURACIL
     Indication: PANCREATIC CARCINOMA
     Dosage: 4400 MG, UNK (FOR 46 HOURS)
     Route: 042
  4. ONIVYDE [Suspect]
     Active Substance: IRINOTECAN HYDROCHLORIDE
     Dosage: 100 MG, UNK (FIRST AND SECOND ADMINISTRATION)
     Route: 042

REACTIONS (4)
  - Enteritis [Fatal]
  - Diarrhoea [Fatal]
  - Nausea [Fatal]
  - Vomiting [Fatal]

NARRATIVE: CASE EVENT DATE: 20170206
